FAERS Safety Report 9944881 (Version 1)
Quarter: 2014Q1

REPORT INFORMATION
  Report Type: Report from Study
  Country: US (occurrence: US)
  Receive Date: 20140303
  Receipt Date: 20140303
  Transmission Date: 20141002
  Serious: No
  Sender: FDA-Public Use
  Company Number: US-ABBVIE-13P-163-1052287-00

PATIENT
  Age: 47 Year
  Sex: Female

DRUGS (6)
  1. HUMIRA [Suspect]
     Indication: COLITIS ULCERATIVE
     Dates: start: 201210
  2. HUMIRA [Suspect]
     Dates: start: 20130223
  3. COLAZAL [Concomitant]
     Indication: PRODUCT USED FOR UNKNOWN INDICATION
     Dosage: 9 CAPSULES DAILY, 5 IN THE MORNING, 4 IN THE EVENING
  4. VITAMIN D AND CALCIUM [Concomitant]
     Indication: STEROID THERAPY
  5. FISH OIL [Concomitant]
     Indication: VITAMIN SUPPLEMENTATION
  6. BENADRYL [Concomitant]
     Indication: RASH PRURITIC

REACTIONS (3)
  - Erythema [Not Recovered/Not Resolved]
  - Urticaria [Not Recovered/Not Resolved]
  - Pruritus generalised [Not Recovered/Not Resolved]
